FAERS Safety Report 6722341-5 (Version None)
Quarter: 2010Q2

REPORT INFORMATION
  Report Type: 
  Country: None (occurrence: None)
  Receive Date: 20100512
  Receipt Date: 20100505
  Transmission Date: 20101027
  Serious: Yes (Hospitalization)
  Sender: FDA-Public Use
  Company Number: GXKR2010DK05126

PATIENT
  Sex: Female
  Weight: 95 kg

DRUGS (7)
  1. SIMVASTATIN [Suspect]
     Indication: HYPERCHOLESTEROLAEMIA
     Route: 048
     Dates: start: 20060101, end: 20100320
  2. PERILAX [Concomitant]
     Indication: CONSTIPATION
     Dosage: 10 MILLIGRAM(S)
     Route: 048
  3. LACTULOSE [Concomitant]
     Route: 048
  4. HJERTEMAGNYL [Concomitant]
     Indication: THROMBOSIS PROPHYLAXIS
     Dosage: 75 MILLIGRAM(S)
     Route: 048
  5. TRADOLAN [Concomitant]
     Dosage: 50 MG, QID
     Route: 048
  6. ACETAMINOPHEN [Concomitant]
     Dosage: 500 MILLIGRAM(S)
     Route: 048
  7. FERRO DURETTER [Concomitant]
     Dosage: 100 MG, QD
     Route: 048

REACTIONS (4)
  - BIOPSY MUSCLE [None]
  - BLOOD CREATINE PHOSPHOKINASE INCREASED [None]
  - CONFUSIONAL STATE [None]
  - MYALGIA [None]
